FAERS Safety Report 15626283 (Version 1)
Quarter: 2018Q4

REPORT INFORMATION
  Report Type: Spontaneous
  Country: DE (occurrence: DE)
  Receive Date: 20181116
  Receipt Date: 20181116
  Transmission Date: 20190205
  Serious: Yes (Other)
  Sender: FDA-Public Use
  Company Number: DE-IPSEN BIOPHARMACEUTICALS, INC.-2016-10653

PATIENT
  Age: 73 Year
  Sex: Female

DRUGS (1)
  1. EZICLEN [Suspect]
     Active Substance: MAGNESIUM SULFATE\POTASSIUM SULFATE\SODIUM SULFATE
     Indication: BOWEL PREPARATION
     Dosage: 1 X 176 ML BOTTLE
     Route: 048
     Dates: start: 20161128, end: 20161128

REACTIONS (7)
  - Abdominal pain upper [Unknown]
  - Product taste abnormal [Unknown]
  - Headache [Unknown]
  - Vomiting [Unknown]
  - Oesophageal perforation [Unknown]
  - Malaise [Unknown]
  - Nausea [Unknown]

NARRATIVE: CASE EVENT DATE: 20161128
